FAERS Safety Report 5056054-5 (Version None)
Quarter: 2006Q2

REPORT INFORMATION
  Report Type: 
  Country: None (occurrence: None)
  Receive Date: 20060616
  Receipt Date: 20060220
  Transmission Date: 20061013
  Serious: No
  Sender: FDA-Public Use
  Company Number: 2006US000177

PATIENT
  Age: 80 Year
  Sex: Male
  Weight: 74.8 kg

DRUGS (3)
  1. VESICARE [Suspect]
     Indication: DRUG USE FOR UNKNOWN INDICATION
     Dosage: 5 MG UID/QD ORAL
     Route: 048
     Dates: start: 20060112, end: 20060112
  2. VESICARE [Suspect]
     Indication: DRUG USE FOR UNKNOWN INDICATION
     Dosage: 5 MG UID/QD ORAL
     Route: 048
     Dates: start: 20060114, end: 20060114
  3. LEXAPRO [Concomitant]

REACTIONS (1)
  - HAEMATURIA [None]
